FAERS Safety Report 9506962 (Version 2)
Quarter: 2014Q1

REPORT INFORMATION
  Report Type: Spontaneous
  Country: US (occurrence: US)
  Receive Date: 20130909
  Receipt Date: 20140306
  Transmission Date: 20141002
  Serious: Yes (Other)
  Sender: FDA-Public Use
  Company Number: US-BAYER-2013-103150

PATIENT
  Age: 48 Year
  Sex: Female

DRUGS (4)
  1. YAZ [Suspect]
     Indication: DYSMENORRHOEA
  2. YAZ [Suspect]
     Indication: BREAST TENDERNESS
  3. GIANVI [Suspect]
  4. EFFEXOR [Concomitant]
     Dosage: 150 MG, DAILY
     Route: 048
     Dates: start: 20120716

REACTIONS (1)
  - Deep vein thrombosis [None]
